FAERS Safety Report 5640322-X (Version None)
Quarter: 2008Q1

REPORT INFORMATION
  Report Type: 
  Country: None (occurrence: None)
  Receive Date: 20080227
  Receipt Date: 20080104
  Transmission Date: 20080703
  Serious: No
  Sender: FDA-Public Use
  Company Number: US-BAXTER-2008BH000196

PATIENT
  Age: 63 Year
  Sex: Female

DRUGS (8)
  1. HEPARIN SODIUM [Suspect]
     Indication: PROPHYLAXIS
     Route: 010
     Dates: start: 20071220, end: 20071220
  2. HEPARIN SODIUM [Suspect]
     Route: 010
     Dates: start: 20071220, end: 20071220
  3. HEPARIN SODIUM [Suspect]
     Route: 010
     Dates: start: 20071220, end: 20071220
  4. HEPARIN SODIUM [Suspect]
     Route: 010
     Dates: start: 20071220, end: 20071220
  5. HEPARIN SODIUM [Suspect]
     Route: 010
     Dates: start: 20071220, end: 20071220
  6. HEPARIN SODIUM [Suspect]
     Route: 010
     Dates: start: 20071220, end: 20071220
  7. HEPARIN SODIUM [Suspect]
     Route: 010
     Dates: start: 20071220, end: 20071220
  8. SODIUM CHLORIDE INJ [Concomitant]
     Indication: DRUG USE FOR UNKNOWN INDICATION
     Dosage: DOSE UNIT:UNKNOWN
     Route: 010
     Dates: start: 20071201, end: 20071201

REACTIONS (1)
  - DYSPNOEA [None]
